FAERS Safety Report 13820674 (Version 1)
Quarter: 2017Q3

REPORT INFORMATION
  Report Type: Spontaneous
  Country: US (occurrence: US)
  Receive Date: 20170801
  Receipt Date: 20170801
  Transmission Date: 20171127
  Serious: No
  Sender: FDA-Public Use
  Company Number: US-TEVA-727360ACC

PATIENT
  Age: 57 Year
  Sex: Female

DRUGS (1)
  1. HABITROL [Suspect]
     Active Substance: NICOTINE
     Indication: PROPHYLAXIS

REACTIONS (3)
  - Drug ineffective [Unknown]
  - Oral discomfort [Not Recovered/Not Resolved]
  - Product use in unapproved indication [Unknown]
